FAERS Safety Report 10937405 (Version 2)
Quarter: 2015Q2

REPORT INFORMATION
  Report Type: Spontaneous
  Country: US (occurrence: US)
  Receive Date: 20150321
  Receipt Date: 20150525
  Transmission Date: 20150821
  Serious: No
  Sender: FDA-Public Use
  Company Number: US-JNJFOC-20131213019

PATIENT
  Sex: Male

DRUGS (1)
  1. STELARA [Suspect]
     Active Substance: USTEKINUMAB
     Indication: PSORIATIC ARTHROPATHY
     Route: 058

REACTIONS (6)
  - Nausea [Not Recovered/Not Resolved]
  - Infection [Unknown]
  - Dyspnoea [Unknown]
  - Pain [Unknown]
  - Therapeutic response decreased [Unknown]
  - Chest pain [Unknown]

NARRATIVE: CASE EVENT DATE: 2013
